FAERS Safety Report 4393846-X (Version None)
Quarter: 2004Q3

REPORT INFORMATION
  Report Type: 
  Country: None (occurrence: None)
  Receive Date: 20040701
  Receipt Date: 20040618
  Transmission Date: 20050211
  Serious: Yes (Other)
  Sender: FDA-Public Use
  Company Number: US-JNJFOC-20040205242

PATIENT
  Sex: Female

DRUGS (3)
  1. REMICADE [Suspect]
     Indication: RHEUMATOID ARTHRITIS
     Dosage: 200 MG, 1 IN 2 MONTH, INTRAVENOUS
     Route: 042
     Dates: start: 20031024, end: 20031203
  2. METHOTREXATE [Concomitant]
  3. VIOXX [Concomitant]

REACTIONS (8)
  - ALANINE AMINOTRANSFERASE INCREASED [None]
  - BLOOD ALBUMIN DECREASED [None]
  - BLOOD CALCIUM DECREASED [None]
  - BLOOD GLUCOSE INCREASED [None]
  - GLOMERULONEPHRITIS MINIMAL LESION [None]
  - POST PROCEDURAL DISCOMFORT [None]
  - PYREXIA [None]
  - RASH [None]
